FAERS Safety Report 6981299-4 (Version None)
Quarter: 2010Q3

REPORT INFORMATION
  Report Type: 
  Country: None (occurrence: None)
  Receive Date: 20100914
  Receipt Date: 20100907
  Transmission Date: 20110219
  Serious: Yes (Hospitalization, Other)
  Sender: FDA-Public Use
  Company Number: GB-WYE-G06632610

PATIENT
  Sex: Female

DRUGS (5)
  1. GEMTUZUMAB OZOGAMICIN [Suspect]
     Indication: ACUTE MYELOID LEUKAEMIA
     Dosage: UNKNOWN
     Dates: start: 20100401
  2. IDARUBICIN HCL [Suspect]
     Dosage: UNKNOWN
     Dates: start: 20100428
  3. FLUDARABINE [Concomitant]
     Dosage: UNKNOWN
     Dates: start: 20100428
  4. CYTARABINE [Concomitant]
     Indication: ACUTE MYELOID LEUKAEMIA
     Dosage: UNKNOWN
     Dates: start: 20100401
  5. DAUNORUBICIN HCL [Suspect]
     Indication: ACUTE MYELOID LEUKAEMIA
     Dosage: UNKNOWN
     Dates: start: 20100401

REACTIONS (4)
  - CARDIOTOXICITY [None]
  - HYPOTENSION [None]
  - NEUTROPENIC SEPSIS [None]
  - TACHYCARDIA [None]
